FAERS Safety Report 22675084 (Version 3)
Quarter: 2023Q4

REPORT INFORMATION
  Report Type: Report from Study
  Country: JP (occurrence: JP)
  Receive Date: 20230706
  Receipt Date: 20231106
  Transmission Date: 20240109
  Serious: Yes (Other)
  Sender: FDA-Public Use
  Company Number: JP-SA-2023SA201652

PATIENT
  Age: 37 Year
  Sex: Female
  Weight: 35 kg

DRUGS (17)
  1. VANDETANIB [Suspect]
     Active Substance: VANDETANIB
     Indication: Medullary thyroid cancer
     Dosage: DAILY DOSE: 300 MG
     Route: 048
     Dates: start: 20180205, end: 20180220
  2. VANDETANIB [Suspect]
     Active Substance: VANDETANIB
     Dosage: DAILY DOSE: 200 MG
     Route: 048
     Dates: start: 20180305, end: 20180319
  3. VANDETANIB [Suspect]
     Active Substance: VANDETANIB
     Dosage: DAILY DOSE: 200 MG
     Route: 048
     Dates: start: 20180409, end: 20180509
  4. DEXAMETHASONE [Suspect]
     Active Substance: DEXAMETHASONE
     Indication: Adrenal insufficiency
     Dosage: DAILY DOSE: 4 MG
     Route: 048
     Dates: start: 20180122
  5. DEXAMETHASONE [Suspect]
     Active Substance: DEXAMETHASONE
     Indication: Brain oedema
  6. NEXIUM [Concomitant]
     Active Substance: ESOMEPRAZOLE MAGNESIUM
     Indication: Gastrooesophageal reflux disease
     Dosage: DAILY DOSE: 20 MG
     Route: 048
     Dates: start: 20180122
  7. LEVOTHYROXINE SODIUM [Concomitant]
     Active Substance: LEVOTHYROXINE SODIUM
     Indication: Post procedural hypothyroidism
     Dosage: DAILY DOSE: 100 UG
     Route: 048
     Dates: start: 20180122
  8. LEVOTHYROXINE SODIUM [Concomitant]
     Active Substance: LEVOTHYROXINE SODIUM
     Dosage: DAILY DOSE: 25 UG
     Route: 048
     Dates: start: 20180122
  9. SYMPROIC [Concomitant]
     Active Substance: NALDEMEDINE
     Indication: Constipation
     Dosage: DAILY DOSE: 0.2 MG
     Route: 048
     Dates: start: 20180202
  10. ALLOID [Concomitant]
     Indication: Gastrooesophageal reflux disease
     Dosage: DAILY DOSE: 90 MG
     Route: 048
     Dates: start: 20180122
  11. SULFAMETHOXAZOLE\TRIMETHOPRIM [Concomitant]
     Active Substance: SULFAMETHOXAZOLE\TRIMETHOPRIM
     Indication: Prophylaxis
     Dosage: DAILY DOSE: 1 TABLET
     Route: 048
     Dates: start: 20180122
  12. OXYCODONE HYDROCHLORIDE [Concomitant]
     Active Substance: OXYCODONE HYDROCHLORIDE
     Indication: Pain
     Dosage: DAILY DOSE: 10 MG
     Route: 048
     Dates: start: 20180129
  13. CALONAL [Concomitant]
     Active Substance: ACETAMINOPHEN
     Indication: Pain
     Dosage: DAILY DOSE: 1800 MG
     Route: 048
     Dates: start: 20180130
  14. MAGNESIUM OXIDE [Concomitant]
     Active Substance: MAGNESIUM OXIDE
     Indication: Constipation
     Dosage: 0.67 G (3 PACKETS)
     Route: 048
     Dates: start: 20180201
  15. SODIUM PICOSULFATE [Concomitant]
     Active Substance: SODIUM PICOSULFATE
     Indication: Constipation
     Dosage: ADEQUATE DOSE
     Route: 048
     Dates: start: 20180122
  16. SODIUM CHLORIDE [Concomitant]
     Active Substance: SODIUM CHLORIDE
     Indication: Electrolyte imbalance
     Dosage: DAILY DOSE: 3 G
     Route: 048
     Dates: start: 20180129, end: 20180208
  17. SODIUM CHLORIDE [Concomitant]
     Active Substance: SODIUM CHLORIDE
     Indication: Electrolyte imbalance
     Dosage: DAILY DOSE: 40 ML
     Route: 041
     Dates: start: 20180209

REACTIONS (14)
  - Myelosuppression [Recovered/Resolved]
  - Myelosuppression [Recovered/Resolved]
  - Diarrhoea [Recovering/Resolving]
  - Diarrhoea [Not Recovered/Not Resolved]
  - Decreased appetite [Recovered/Resolved]
  - Hepatic function abnormal [Recovered/Resolved]
  - Pleural effusion [Recovering/Resolving]
  - Head injury [Recovered/Resolved]
  - Gastrointestinal disorder [Not Recovered/Not Resolved]
  - Electrolyte imbalance [Recovered/Resolved]
  - Condition aggravated [Recovered/Resolved]
  - Electrolyte imbalance [Recovered/Resolved]
  - Condition aggravated [Recovered/Resolved]
  - Back pain [Recovered/Resolved]

NARRATIVE: CASE EVENT DATE: 20180214
